FAERS Safety Report 24894001 (Version 1)
Quarter: 2025Q1

REPORT INFORMATION
  Report Type: Spontaneous
  Country: GB (occurrence: GB)
  Receive Date: 20250128
  Receipt Date: 20250128
  Transmission Date: 20250409
  Serious: Yes (Other)
  Sender: ABBVIE
  Company Number: None

PATIENT
  Age: 22 Year

DRUGS (1)
  1. FLUOROMETHOLONE [Suspect]
     Active Substance: FLUOROMETHOLONE
     Indication: Eye allergy
     Route: 065

REACTIONS (2)
  - Product prescribing error [Unknown]
  - Hordeolum [Recovered/Resolved]

NARRATIVE: CASE EVENT DATE: 20250116
